FAERS Safety Report 10627681 (Version 2)
Quarter: 2015Q1

REPORT INFORMATION
  Report Type: Spontaneous
  Country: DE (occurrence: DE)
  Receive Date: 20141205
  Receipt Date: 20150324
  Transmission Date: 20150720
  Serious: Yes (Death)
  Sender: FDA-Public Use
  Company Number: DE-BRISTOL-MYERS SQUIBB COMPANY-21672340

PATIENT
  Age: 71 Year
  Sex: Male
  Weight: 98 kg

DRUGS (4)
  1. CLEXANE [Suspect]
     Active Substance: ENOXAPARIN SODIUM
     Indication: EMBOLISM VENOUS
     Dosage: 40 MG, QD
     Route: 058
     Dates: start: 20141030, end: 20141101
  2. ELIQUIS [Suspect]
     Active Substance: APIXABAN
     Indication: EMBOLISM VENOUS
     Dosage: 2.5 MG, BID
     Route: 065
     Dates: start: 20141102, end: 20141110
  3. ARCOXIA [Concomitant]
     Active Substance: ETORICOXIB
     Indication: PRODUCT USED FOR UNKNOWN INDICATION
     Route: 065
  4. ASPIRIN. [Concomitant]
     Active Substance: ASPIRIN
     Indication: CEREBROVASCULAR ACCIDENT
     Route: 065

REACTIONS (4)
  - Disseminated intravascular coagulation [Fatal]
  - Leriche syndrome [Fatal]
  - Cerebral infarction [Fatal]
  - Heparin-induced thrombocytopenia [Fatal]

NARRATIVE: CASE EVENT DATE: 20141107
